FAERS Safety Report 5007420-5 (Version None)
Quarter: 2006Q2

REPORT INFORMATION
  Report Type: 
  Country: None (occurrence: None)
  Receive Date: 20060518
  Receipt Date: 20060518
  Transmission Date: 20061013
  Serious: Yes (Hospitalization, Disabling)
  Sender: FDA-Public Use
  Company Number: None

PATIENT
  Sex: Male
  Weight: 0.9 kg

DRUGS (1)
  1. INDOMETHACIN [Suspect]
     Dosage: SEE IMAGE
     Route: 042
     Dates: start: 20060311, end: 20060313

REACTIONS (1)
  - GASTROINTESTINAL PERFORATION [None]
